FAERS Safety Report 5378482-0 (Version None)
Quarter: 2007Q3

REPORT INFORMATION
  Report Type: 
  Country: None (occurrence: None)
  Receive Date: 20070705
  Receipt Date: 20070625
  Transmission Date: 20080115
  Serious: Yes (Death, Hospitalization)
  Sender: FDA-Public Use
  Company Number: US-JNJFOC-20070400946

PATIENT
  Age: 6 Decade
  Sex: Male

DRUGS (3)
  1. REMICADE [Suspect]
     Dosage: THIRD DOSE
     Route: 042
  2. REMICADE [Suspect]
     Route: 042
  3. REMICADE [Suspect]
     Indication: RHEUMATOID ARTHRITIS
     Route: 042

REACTIONS (2)
  - COCCIDIOIDOMYCOSIS [None]
  - DEATH [None]
